FAERS Safety Report 9521843 (Version 1)
Quarter: 2013Q3

REPORT INFORMATION
  Report Type: Spontaneous
  Country: US (occurrence: None)
  Receive Date: 20130911
  Receipt Date: 20130911
  Transmission Date: 20140515
  Serious: Yes (Life-Threatening, Hospitalization, Other)
  Sender: FDA-Public Use
  Company Number: AEUSA201300081

PATIENT
  Age: 16 Year
  Sex: Female
  Weight: 59 kg

DRUGS (5)
  1. GAMUNEX-C (10 PCT) [Suspect]
     Indication: COMBINED IMMUNODEFICIENCY
     Route: 042
     Dates: start: 20130219
  2. LEVOTHYROXINE [Concomitant]
  3. FLOVENT [Concomitant]
  4. LEVALBUTEROL [Concomitant]
  5. ZOFRAN [Concomitant]

REACTIONS (1)
  - Cerebrovascular accident [None]
